FAERS Safety Report 14698329 (Version 1)
Quarter: 2018Q1

REPORT INFORMATION
  Report Type: Report from Study
  Country: None (occurrence: BR)
  Receive Date: 20180330
  Receipt Date: 20180330
  Transmission Date: 20180509
  Serious: Yes (Other)
  Sender: FDA-Public Use
  Company Number: BR-ABBVIE-18K-020-2305530-00

PATIENT
  Age: 67 Year
  Sex: Female
  Weight: 82 kg

DRUGS (1)
  1. HUMIRA [Suspect]
     Active Substance: ADALIMUMAB
     Indication: RHEUMATOID ARTHRITIS
     Route: 058
     Dates: start: 20110102

REACTIONS (2)
  - Pneumonia [Recovered/Resolved]
  - Asthmatic crisis [Recovered/Resolved]

NARRATIVE: CASE EVENT DATE: 201708
